FAERS Safety Report 4657766-5 (Version None)
Quarter: 2005Q2

REPORT INFORMATION
  Report Type: 
  Country: None (occurrence: None)
  Receive Date: 20050510
  Receipt Date: 20050427
  Transmission Date: 20051028
  Serious: Yes (Other)
  Sender: FDA-Public Use
  Company Number: US-GLAXOSMITHKLINE-A0556147A

PATIENT
  Age: 80 Year
  Sex: Male
  Weight: 66 kg

DRUGS (5)
  1. ECOTRIN REGULAR STRENGTH TABLETS [Suspect]
     Indication: PROPHYLAXIS
     Dosage: 325MG PER DAY
     Route: 048
     Dates: start: 19890101
  2. ZOCOR [Concomitant]
     Dosage: 5MG PER DAY
     Dates: end: 20040601
  3. ALLEGRA [Concomitant]
  4. FOLIC ACID [Concomitant]
     Indication: BLOOD HOMOCYSTEINE INCREASED
     Dates: start: 20041201
  5. LIPITOR [Concomitant]
     Dates: start: 20040601

REACTIONS (5)
  - ANAEMIA [None]
  - ASTHENIA [None]
  - FAECAL OCCULT BLOOD POSITIVE [None]
  - HAEMOGLOBIN DECREASED [None]
  - PLATELET COUNT DECREASED [None]
